FAERS Safety Report 7609587-9 (Version None)
Quarter: 2011Q3

REPORT INFORMATION
  Report Type: 
  Country: None (occurrence: None)
  Receive Date: 20110714
  Receipt Date: 20110705
  Transmission Date: 20111222
  Serious: Yes (Other)
  Sender: FDA-Public Use
  Company Number: FR-CEPHALON-2011002227

PATIENT
  Sex: Female
  Weight: 58 kg

DRUGS (12)
  1. HEXTRIL [Concomitant]
  2. DOMPERIDONE [Concomitant]
  3. PRAZEPAM [Concomitant]
  4. ACETAMINOPHEN [Concomitant]
  5. MODAFINIL [Suspect]
     Indication: NARCOLEPSY
     Route: 048
     Dates: start: 19980101
  6. MORPHINE SULFATE [Concomitant]
  7. CELLUVISC [Concomitant]
  8. LEXOMIL [Concomitant]
  9. LEVOTHYROXINE SODIUM [Concomitant]
  10. VOLTAREN [Concomitant]
  11. FORLAX [Concomitant]
  12. AMITRIPTYLINE HCL [Concomitant]

REACTIONS (2)
  - PANCYTOPENIA [None]
  - PULMONARY TUBERCULOSIS [None]
